FAERS Safety Report 14979970 (Version 1)
Quarter: 2018Q2

REPORT INFORMATION
  Report Type: Report from Study
  Country: BR (occurrence: BR)
  Receive Date: 20180606
  Receipt Date: 20180606
  Transmission Date: 20180711
  Serious: Yes (Death, Hospitalization, Disabling, Other)
  Sender: FDA-Public Use
  Company Number: BR-BAYER-2017-220202

PATIENT
  Age: 79 Year
  Sex: Male

DRUGS (1)
  1. NEXAVAR [Suspect]
     Active Substance: SORAFENIB
     Indication: HEPATOCELLULAR CARCINOMA
     Dosage: UNK
     Dates: start: 20170102, end: 201710

REACTIONS (8)
  - Seizure [Recovered/Resolved with Sequelae]
  - Blood test abnormal [Recovered/Resolved]
  - Bedridden [None]
  - Metastases to central nervous system [Fatal]
  - Hepatocellular carcinoma [Fatal]
  - Weight decreased [None]
  - Petit mal epilepsy [None]
  - Hepatocellular carcinoma [None]

NARRATIVE: CASE EVENT DATE: 2017
